FAERS Safety Report 12731089 (Version 1)
Quarter: 2016Q3

REPORT INFORMATION
  Report Type: Spontaneous
  Country: BR (occurrence: BR)
  Receive Date: 20160911
  Receipt Date: 20160911
  Transmission Date: 20161109
  Serious: Yes (Hospitalization, Congenital Anomaly)
  Sender: FDA-Public Use
  Company Number: BR-009507513-1609BRA002081

PATIENT
  Sex: Female

DRUGS (1)
  1. IMPLANON [Suspect]
     Active Substance: ETONOGESTREL
     Dosage: UNK
     Route: 064

REACTIONS (7)
  - Low birth weight baby [Recovered/Resolved]
  - Premature baby [Unknown]
  - Dyspnoea [Recovered/Resolved]
  - Mite allergy [Unknown]
  - Cardiac murmur [Recovered/Resolved]
  - Foetal exposure timing unspecified [Recovered/Resolved]
  - Exposure during breast feeding [Unknown]

NARRATIVE: CASE EVENT DATE: 20121029
